FAERS Safety Report 7211700-2 (Version None)
Quarter: 2011Q1

REPORT INFORMATION
  Report Type: 
  Country: None (occurrence: None)
  Receive Date: 20110105
  Receipt Date: 20110103
  Transmission Date: 20110831
  Serious: Yes (Death, Life-Threatening, Hospitalization)
  Sender: FDA-Public Use
  Company Number: FR-PFIZER INC-2011000254

PATIENT
  Age: 36 Year
  Sex: Male

DRUGS (27)
  1. LIDOCAINE [Concomitant]
     Dosage: UNK
     Dates: start: 20091110, end: 20091111
  2. OXYCONTIN [Concomitant]
     Dosage: UNK
     Dates: start: 20091109, end: 20091113
  3. LEXOMIL [Concomitant]
     Dosage: UNK
     Dates: start: 20091109, end: 20091113
  4. NEUPOGEN [Concomitant]
     Dosage: UNK
     Dates: start: 20091111, end: 20091111
  5. NEUPOGEN [Concomitant]
     Dosage: UNK
     Dates: start: 20091111, end: 20091113
  6. LAROXYL [Suspect]
     Dosage: 25 MG, 2X/DAY
     Route: 048
     Dates: start: 20091109, end: 20091111
  7. GLUCOSE/POTASSIUM CHLORIDE/SODIUM CHLORIDE/SODIUM LACTATE [Concomitant]
     Dosage: UNK
     Dates: start: 20091109, end: 20091113
  8. OXYCODONE HCL [Concomitant]
     Dosage: UNK
     Dates: start: 20091109, end: 20091110
  9. ORAMORPH SR [Concomitant]
     Dosage: UNK
     Dates: start: 20091110, end: 20091113
  10. ZOPHREN [Concomitant]
     Dosage: UNK
     Dates: start: 20091110, end: 20091113
  11. HYDROCORTISONE [Concomitant]
     Dosage: UNK
     Dates: start: 20091113, end: 20091113
  12. ETOPOSIDE [Suspect]
     Indication: EXTRAGONADAL PRIMARY GERM CELL TUMOUR MIXED STAGE I
     Dosage: 770 MG, 1X/DAY
     Route: 042
     Dates: start: 20091109, end: 20091111
  13. LAROXYL [Suspect]
     Dosage: 50 MG, 1X/DAY
     Route: 048
     Dates: start: 20091110, end: 20091111
  14. HALDOL [Suspect]
     Indication: NAUSEA
     Dosage: 2 MG, ALTERNATE DAY
     Route: 048
     Dates: start: 20091112, end: 20091113
  15. CONTRAMAL [Suspect]
     Indication: PAIN
     Dosage: 150 MG, UNK
     Route: 048
     Dates: start: 20091113, end: 20091113
  16. ONDANSETRON [Concomitant]
     Dosage: UNK
     Dates: start: 20091111
  17. AUGMENTIN '125' [Suspect]
     Dosage: UNK
     Route: 048
     Dates: start: 20091101
  18. EFFERALGAN [Concomitant]
     Dosage: UNK
     Dates: start: 20091110, end: 20091113
  19. EMEND [Suspect]
     Dosage: 80 MG, 1X/DAY
     Route: 048
     Dates: start: 20091110, end: 20091113
  20. POLARAMINE [Suspect]
     Dosage: 1 DF, 5MG/1ML, 1X/DAY
     Route: 042
     Dates: start: 20091113, end: 20091113
  21. CARBOPLATIN [Suspect]
     Indication: EXTRAGONADAL PRIMARY GERM CELL TUMOUR MIXED STAGE I
     Dosage: 1300 MG, 1X/DAY
     Route: 042
     Dates: start: 20091109, end: 20091111
  22. NEURONTIN [Suspect]
     Dosage: 800 MG, 3X/DAY
     Route: 048
     Dates: start: 20091109, end: 20091113
  23. TOPALGIC [Suspect]
     Indication: PAIN
     Dosage: 50 MG, 3X/DAY
     Route: 048
     Dates: start: 20091113, end: 20091113
  24. TRIFLUCAN [Suspect]
     Dosage: 50 MG, 1X/DAY
     Route: 048
     Dates: start: 20091101
  25. CIPROFLOXACIN HYDROCHLORIDE [Suspect]
     Dosage: 500 MG, 1X/DAY
     Route: 048
     Dates: start: 20091101
  26. EMEND [Suspect]
     Dosage: 125 MG, 1X/DAY
     Route: 048
     Dates: start: 20091109, end: 20091111
  27. PRIMPERAN TAB [Concomitant]
     Dosage: UNK
     Dates: start: 20091110, end: 20091113

REACTIONS (2)
  - ILEITIS [None]
  - FEBRILE BONE MARROW APLASIA [None]
